FAERS Safety Report 4856133-9 (Version None)
Quarter: 2005Q4

REPORT INFORMATION
  Report Type: 
  Country: None (occurrence: None)
  Receive Date: 20051216
  Receipt Date: 20051214
  Transmission Date: 20060501
  Serious: Yes (Hospitalization)
  Sender: FDA-Public Use
  Company Number: FR-MERCK-0512FRA00053

PATIENT
  Age: 78 Year
  Sex: Male

DRUGS (7)
  1. PRIMAXIN [Suspect]
     Route: 041
     Dates: start: 20051109, end: 20051114
  2. TERBUTALINE SULFATE [Suspect]
     Route: 055
     Dates: start: 20051109, end: 20051111
  3. DOMPERIDONE [Suspect]
     Route: 048
     Dates: start: 20051109
  4. FOSFOMYCIN [Suspect]
     Route: 041
     Dates: start: 20051109, end: 20051114
  5. RILMENIDINE PHOSPHATE [Concomitant]
     Route: 048
  6. HYDROXYZINE HYDROCHLORIDE [Suspect]
     Route: 048
     Dates: start: 20051109
  7. FOSINOPRIL SODIUM [Suspect]
     Indication: HYPERTENSION
     Route: 048
     Dates: start: 20051109

REACTIONS (2)
  - GENERALISED ERYTHEMA [None]
  - PRURITUS [None]
